FAERS Safety Report 25684982 (Version 1)
Quarter: 2025Q3

REPORT INFORMATION
  Report Type: Spontaneous
  Country: US (occurrence: US)
  Receive Date: 20250815
  Receipt Date: 20250815
  Transmission Date: 20251020
  Serious: No
  Sender: SANOFI AVENTIS
  Company Number: US-SA-2025SA239019

PATIENT
  Age: 62 Year
  Sex: Female

DRUGS (8)
  1. DUPIXENT [Suspect]
     Active Substance: DUPILUMAB
     Indication: Dermatitis atopic
     Dates: start: 20250811
  2. METFORMIN [Concomitant]
     Active Substance: METFORMIN HYDROCHLORIDE
  3. ACETAMINOPHEN [Concomitant]
     Active Substance: ACETAMINOPHEN
  4. TACROLIMUS [Concomitant]
     Active Substance: TACROLIMUS
  5. ATORVASTATIN [Concomitant]
     Active Substance: ATORVASTATIN
  6. MOUNJARO [Concomitant]
     Active Substance: TIRZEPATIDE
  7. BUPROPION [Concomitant]
     Active Substance: BUPROPION
  8. CELECOXIB [Concomitant]
     Active Substance: CELECOXIB

REACTIONS (1)
  - Injection site pain [Unknown]

NARRATIVE: CASE EVENT DATE: 20250811
